FAERS Safety Report 13501529 (Version 1)
Quarter: 2017Q2

REPORT INFORMATION
  Report Type: Spontaneous
  Country: DE (occurrence: DE)
  Receive Date: 20170501
  Receipt Date: 20170501
  Transmission Date: 20170830
  Serious: Yes (Death)
  Sender: FDA-Public Use
  Company Number: DE-TEIKOKU PHARMA USA-TPU2017-00251

PATIENT
  Sex: Female

DRUGS (1)
  1. VERSATIS [Suspect]
     Active Substance: LIDOCAINE
     Indication: PAIN
     Route: 061

REACTIONS (1)
  - Death [None]
